FAERS Safety Report 4759785-7 (Version None)
Quarter: 2005Q3

REPORT INFORMATION
  Report Type: 
  Country: None (occurrence: None)
  Receive Date: 20050902
  Receipt Date: 20050609
  Transmission Date: 20060218
  Serious: Yes (Hospitalization)
  Sender: FDA-Public Use
  Company Number: US-MERCK-0506USA01477

PATIENT
  Age: 46 Year
  Sex: Male
  Weight: 123 kg

DRUGS (22)
  1. VIOXX [Suspect]
     Indication: BACK PAIN
     Route: 048
     Dates: start: 20030515, end: 20040507
  2. VIOXX [Suspect]
     Route: 048
     Dates: start: 20030515, end: 20040501
  3. VIOXX [Suspect]
     Indication: NECK PAIN
     Route: 048
     Dates: start: 20030515, end: 20040507
  4. VIOXX [Suspect]
     Route: 048
     Dates: start: 20030515, end: 20040501
  5. ADVIL [Concomitant]
     Indication: PAIN
     Route: 065
     Dates: start: 20020101, end: 20030501
  6. ADVIL [Concomitant]
     Route: 065
     Dates: start: 20040501
  7. ADVIL [Concomitant]
     Indication: HEADACHE
     Route: 065
     Dates: start: 20020101, end: 20030501
  8. ADVIL [Concomitant]
     Route: 065
     Dates: start: 20040501
  9. NAPROSYN [Concomitant]
     Indication: PAIN
     Route: 065
     Dates: start: 20020101, end: 20030501
  10. NAPROSYN [Concomitant]
     Route: 065
     Dates: start: 20040501
  11. NAPROSYN [Concomitant]
     Route: 065
     Dates: start: 20040501
  12. NAPROSYN [Concomitant]
     Indication: HEADACHE
     Route: 065
     Dates: start: 20020101, end: 20030501
  13. NAPROSYN [Concomitant]
     Route: 065
     Dates: start: 20040501
  14. NAPROSYN [Concomitant]
     Route: 065
     Dates: start: 20040501
  15. MOTRIN [Concomitant]
     Indication: PAIN
     Route: 065
     Dates: start: 20020101, end: 20030501
  16. MOTRIN [Concomitant]
     Route: 065
     Dates: start: 20040501
  17. MOTRIN [Concomitant]
     Route: 065
     Dates: start: 20020101
  18. MOTRIN [Concomitant]
     Indication: HEADACHE
     Route: 065
     Dates: start: 20020101, end: 20030501
  19. MOTRIN [Concomitant]
     Route: 065
     Dates: start: 20040501
  20. MOTRIN [Concomitant]
     Route: 065
     Dates: start: 20020101
  21. CAMELLIA SINENSIS [Concomitant]
     Route: 065
     Dates: start: 20020101
  22. ASPIRIN [Concomitant]
     Route: 065

REACTIONS (5)
  - BLOOD CHOLESTEROL INCREASED [None]
  - BLOOD TRIGLYCERIDES INCREASED [None]
  - DIABETES MELLITUS [None]
  - MYOCARDIAL INFARCTION [None]
  - SLEEP APNOEA SYNDROME [None]
